FAERS Safety Report 4809856-1 (Version None)
Quarter: 2005Q4

REPORT INFORMATION
  Report Type: 
  Country: None (occurrence: None)
  Receive Date: 20051024
  Receipt Date: 20051024
  Transmission Date: 20060501
  Serious: Yes (Other)
  Sender: FDA-Public Use
  Company Number: None

PATIENT
  Age: 53 Year
  Sex: Male
  Weight: 79.3795 kg

DRUGS (1)
  1. ZICAM  ZINCUM GLUCONICUM  2X  ZICAM LLC PHOENIX, AZ [Suspect]
     Indication: NASOPHARYNGITIS
     Dosage: 2X/NOSTRIL - EVERY 4 HRS NASAL SPRAY
     Route: 045
     Dates: start: 20050925, end: 20050930

REACTIONS (6)
  - DYSGEUSIA [None]
  - GLOSSODYNIA [None]
  - MUCOUS MEMBRANE DISORDER [None]
  - NASAL DISCOMFORT [None]
  - PAROSMIA [None]
  - PERFUME SENSITIVITY [None]
